FAERS Safety Report 7465572-1 (Version None)
Quarter: 2011Q2

REPORT INFORMATION
  Report Type: 
  Country: None (occurrence: None)
  Receive Date: 20110509
  Receipt Date: 20110502
  Transmission Date: 20111010
  Serious: Yes (Other)
  Sender: FDA-Public Use
  Company Number: B0717659A

PATIENT
  Sex: Female
  Weight: 71 kg

DRUGS (1)
  1. ALLI [Suspect]
     Route: 048
     Dates: start: 20110426, end: 20110501

REACTIONS (1)
  - HAEMATOCHEZIA [None]
